FAERS Safety Report 15191468 (Version 1)
Quarter: 2018Q3

REPORT INFORMATION
  Report Type: Report from Study
  Country: US (occurrence: US)
  Receive Date: 20180724
  Receipt Date: 20180724
  Transmission Date: 20181010
  Serious: No
  Sender: FDA-Public Use
  Company Number: US-AMGEN-USASL2018081888

PATIENT
  Age: 74 Year
  Sex: Male

DRUGS (1)
  1. KYPROLIS [Suspect]
     Active Substance: CARFILZOMIB
     Indication: PLASMA CELL MYELOMA
     Dosage: UNK , (1 INFUSION PER WEEK FOR 3 WEEKS EACH CYCLE)
     Route: 065

REACTIONS (4)
  - Sluggishness [Unknown]
  - Off label use [Unknown]
  - Fluid retention [Unknown]
  - Blood potassium decreased [Unknown]
